FAERS Safety Report 5424062-8 (Version None)
Quarter: 2007Q3

REPORT INFORMATION
  Report Type: 
  Country: None (occurrence: None)
  Receive Date: 20070727
  Receipt Date: 20061115
  Transmission Date: 20080115
  Serious: Yes (Hospitalization)
  Sender: FDA-Public Use
  Company Number: THYM-11159

PATIENT
  Age: 60 Year
  Sex: Male
  Weight: 62.1428 kg

DRUGS (9)
  1. THYMOGLOBULIN [Suspect]
     Indication: RENAL TRANSPLANT
     Dosage: 100 MG QD IV
     Route: 042
     Dates: start: 20060218, end: 20060220
  2. GANCICLOVIR [Concomitant]
  3. ATORVASTATIN [Concomitant]
  4. ALENDRONATE SODIUM [Concomitant]
  5. CINACALCET [Concomitant]
  6. RANTIDINE [Concomitant]
  7. PREDNISONE [Concomitant]
  8. PROGRAF [Concomitant]
  9. CELLCEPT [Concomitant]

REACTIONS (7)
  - ADRENAL ADENOMA [None]
  - BRAIN NEOPLASM MALIGNANT [None]
  - CYTOMEGALOVIRUS INFECTION [None]
  - DIPLOPIA [None]
  - EPSTEIN-BARR VIRUS TEST POSITIVE [None]
  - FALL [None]
  - LYMPHOPROLIFERATIVE DISORDER [None]
